FAERS Safety Report 19850550 (Version 2)
Quarter: 2021Q3

REPORT INFORMATION
  Report Type: Report from Study
  Country: None (occurrence: JP)
  Receive Date: 20210917
  Receipt Date: 20210921
  Transmission Date: 20211014
  Serious: Yes (Death)
  Sender: FDA-Public Use
  Company Number: JP-BIOCODEX SA-201600897

PATIENT

DRUGS (10)
  1. DIACOMIT [Suspect]
     Active Substance: STIRIPENTOL
     Dosage: 1000 MG, QD
     Route: 048
     Dates: start: 20150806, end: 20151005
  2. KEPPRA [Suspect]
     Active Substance: LEVETIRACETAM
     Indication: SEVERE MYOCLONIC EPILEPSY OF INFANCY
     Dosage: 1250 MG
     Route: 048
     Dates: start: 20150806, end: 20160206
  3. DIACOMIT [Suspect]
     Active Substance: STIRIPENTOL
     Dosage: 1500 MG, QD
     Route: 048
     Dates: start: 20151105, end: 20160105
  4. OSPOLOT [Suspect]
     Active Substance: SULTHIAME
     Indication: SEVERE MYOCLONIC EPILEPSY OF INFANCY
     Dosage: 400 MG
     Route: 048
     Dates: start: 20150121, end: 20160206
  5. DIACOMIT [Suspect]
     Active Substance: STIRIPENTOL
     Indication: SEVERE MYOCLONIC EPILEPSY OF INFANCY
     Dosage: 750 MG, QD
     Route: 048
     Dates: start: 20150701, end: 20150805
  6. DIACOMIT [Suspect]
     Active Substance: STIRIPENTOL
     Dosage: 1000 MG, QD
     Route: 048
     Dates: start: 20160106, end: 20160206
  7. CLOBAZAM. [Suspect]
     Active Substance: CLOBAZAM
     Indication: SEVERE MYOCLONIC EPILEPSY OF INFANCY
     Dosage: 5 MG
     Route: 048
     Dates: start: 20141120, end: 20160206
  8. PHENOBARBITAL. [Suspect]
     Active Substance: PHENOBARBITAL
     Indication: SEVERE MYOCLONIC EPILEPSY OF INFANCY
     Dosage: 30 MG
     Route: 048
     Dates: start: 20140708, end: 20160205
  9. DIACOMIT [Suspect]
     Active Substance: STIRIPENTOL
     Dosage: 1250 MG, QD
     Route: 048
     Dates: start: 20151006, end: 20151104
  10. DEPAKENE [VALPROATE SODIUM] [Suspect]
     Active Substance: VALPROATE SODIUM
     Indication: SEVERE MYOCLONIC EPILEPSY OF INFANCY
     Dosage: 600 MG
     Route: 048
     Dates: start: 20140718, end: 20160206

REACTIONS (2)
  - Somnolence [Recovered/Resolved]
  - Death [Fatal]

NARRATIVE: CASE EVENT DATE: 20150309
